FAERS Safety Report 5535535-1 (Version None)
Quarter: 2007Q4

REPORT INFORMATION
  Report Type: 
  Country: None (occurrence: None)
  Receive Date: 20071206
  Receipt Date: 20071126
  Transmission Date: 20080405
  Serious: Yes (Death, Life-Threatening, Hospitalization, Other)
  Sender: FDA-Public Use
  Company Number: US-AVENTIS-200718218US

PATIENT
  Age: 12 Year
  Sex: Male
  Weight: 68.18 kg

DRUGS (19)
  1. LASIX [Suspect]
     Dosage: DOSE: UNK
  2. ALBUTEROL SULFATE [Suspect]
     Dosage: DOSE: UNK
     Route: 055
  3. PROVENTIL [Suspect]
     Indication: ASTHMA
     Dosage: DOSE: UNK
     Route: 055
  4. SOLU-MEDROL [Suspect]
     Indication: ASTHMA
     Dosage: DOSE: UNK
  5. TERBUTALINE SULFATE [Suspect]
     Dosage: DOSE: UNK
  6. FENTANYL [Suspect]
     Dosage: DOSE: UNK
  7. DIAMOX                             /00016901/ [Suspect]
     Dosage: DOSE: UNK
  8. IBUPROFEN [Suspect]
     Dosage: DOSE: UNK
  9. OXACILLIN [Concomitant]
     Dosage: DOSE: UNK
  10. CEFTAZIDIME [Concomitant]
     Dosage: DOSE: UNK
  11. METHYLPREDNISOLONE [Concomitant]
     Dosage: DOSE: UNK
  12. ATROVENT [Concomitant]
     Dosage: DOSE: UNK
  13. EPINEPHRINE [Concomitant]
     Dosage: DOSE: UNK
  14. DOPAMINE HCL [Concomitant]
     Dosage: DOSE: UNK
  15. RANITIDINE HCL [Concomitant]
     Dosage: DOSE: UNK
  16. SUCRALFATE [Concomitant]
     Dosage: DOSE: UNK
  17. AZMACORT [Concomitant]
     Dosage: DOSE: UNK
  18. PREDNIZONE [Concomitant]
     Dosage: DOSE: UNK
  19. NASACORT [Concomitant]
     Dosage: DOSE: UNK

REACTIONS (24)
  - ABDOMINAL DISTENSION [None]
  - ANURIA [None]
  - BLOOD CALCIUM DECREASED [None]
  - BLOOD MAGNESIUM DECREASED [None]
  - BRONCHIAL HYPERREACTIVITY [None]
  - DISSEMINATED INTRAVASCULAR COAGULATION [None]
  - EROSIVE DUODENITIS [None]
  - FEELING ABNORMAL [None]
  - GASTRIC HAEMORRHAGE [None]
  - GASTRITIS EROSIVE [None]
  - GASTROINTESTINAL HAEMORRHAGE [None]
  - HYPOTENSION [None]
  - ILEUS PARALYTIC [None]
  - INTESTINAL GANGRENE [None]
  - MULTI-ORGAN FAILURE [None]
  - OVERDOSE [None]
  - PYREXIA [None]
  - RESPIRATORY FAILURE [None]
  - SEPTIC SHOCK [None]
  - SOMNOLENCE [None]
  - STATUS ASTHMATICUS [None]
  - THERAPEUTIC RESPONSE DECREASED [None]
  - THROMBOSIS MESENTERIC VESSEL [None]
  - WHEEZING [None]
